FAERS Safety Report 7916897-4 (Version None)
Quarter: 2011Q4

REPORT INFORMATION
  Report Type: 
  Country: None (occurrence: None)
  Receive Date: 20111116
  Receipt Date: 20111102
  Transmission Date: 20120403
  Serious: No
  Sender: FDA-Public Use
  Company Number: US-B.I. PHARMACEUTICALS,INC./RIDGEFIELD-2011-BP-23120BP

PATIENT
  Sex: Male
  Weight: 82.81 kg

DRUGS (2)
  1. PRADAXA [Suspect]
     Indication: ATRIAL FIBRILLATION
     Dosage: 300 MG
     Route: 048
     Dates: start: 20110705
  2. MULTI-VITAMINS [Concomitant]

REACTIONS (2)
  - ARTHRALGIA [None]
  - OEDEMA PERIPHERAL [None]
